FAERS Safety Report 23424878 (Version 1)
Quarter: 2024Q1

REPORT INFORMATION
  Report Type: Spontaneous
  Country: US (occurrence: US)
  Receive Date: 20240121
  Receipt Date: 20240121
  Transmission Date: 20240410
  Serious: Yes (Hospitalization)
  Sender: FDA-Public Use
  Company Number: US-STRIDES ARCOLAB LIMITED-2024SP000501

PATIENT
  Age: 4 Year
  Sex: Female

DRUGS (7)
  1. CALCITRIOL [Suspect]
     Active Substance: CALCITRIOL
     Indication: Hypocalcaemia
     Dosage: 0.01 MICROGRAM/KILOGRAM
     Route: 065
  2. CALCITRIOL [Suspect]
     Active Substance: CALCITRIOL
     Dosage: 1.25 MICROGRAM, BID (0.07 ?G/KG/DAY)
     Route: 065
  3. CALCITRIOL [Suspect]
     Active Substance: CALCITRIOL
     Dosage: UNK (REDUCED DOSE)
     Route: 065
  4. CALCIUM [Suspect]
     Active Substance: CALCIUM
     Indication: Hypocalcaemia
     Dosage: 20 MG/KG/DAY
     Route: 065
  5. CALCIUM [Suspect]
     Active Substance: CALCIUM
     Dosage: UNK (REDUCED DOSE)
     Route: 065
  6. POTASSIUM CITRATE [Concomitant]
     Active Substance: POTASSIUM CITRATE
     Indication: Hypercalciuria
     Dosage: UNK
     Route: 065
  7. POTASSIUM CITRATE [Concomitant]
     Active Substance: POTASSIUM CITRATE
     Indication: Supplementation therapy

REACTIONS (5)
  - Nephrolithiasis [Unknown]
  - Nephrocalcinosis [Unknown]
  - Renal cyst [Unknown]
  - Acute kidney injury [Unknown]
  - Hypercalcaemia [Unknown]
